FAERS Safety Report 21462287 (Version 4)
Quarter: 2022Q4

REPORT INFORMATION
  Report Type: Report from Study
  Country: CN (occurrence: CN)
  Receive Date: 20221016
  Receipt Date: 20221124
  Transmission Date: 20230113
  Serious: Yes (Death, Hospitalization)
  Sender: FDA-Public Use
  Company Number: CN-NOVARTISPH-NVSC2022CN231256

PATIENT
  Age: 63 Year
  Sex: Male
  Weight: 67 kg

DRUGS (19)
  1. OCIPERLIMAB [Suspect]
     Active Substance: OCIPERLIMAB
     Indication: Non-small cell lung cancer metastatic
     Dosage: 900 MG
     Route: 042
     Dates: start: 20220629
  2. OCIPERLIMAB [Suspect]
     Active Substance: OCIPERLIMAB
     Dosage: 900 MG
     Route: 042
     Dates: start: 20220916, end: 20220916
  3. TISLELIZUMAB [Suspect]
     Active Substance: TISLELIZUMAB
     Indication: Non-small cell lung cancer metastatic
     Dosage: 200 MG
     Route: 042
     Dates: start: 20220629
  4. TISLELIZUMAB [Suspect]
     Active Substance: TISLELIZUMAB
     Dosage: 200 MG
     Route: 042
     Dates: start: 20220916, end: 20220916
  5. PEMETREXED [Suspect]
     Active Substance: PEMETREXED
     Indication: Non-small cell lung cancer metastatic
     Dosage: 862 MG
     Route: 042
     Dates: start: 20220629
  6. PEMETREXED [Suspect]
     Active Substance: PEMETREXED
     Dosage: 696.8 MG
     Route: 042
     Dates: start: 20220916, end: 20220916
  7. OMEPRAZOLE SODIUM [Concomitant]
     Active Substance: OMEPRAZOLE SODIUM
     Indication: Product used for unknown indication
     Dosage: UNK
     Route: 065
     Dates: start: 20220823, end: 20221010
  8. CALCIUM CARBONATE [Concomitant]
     Active Substance: CALCIUM CARBONATE
     Indication: Product used for unknown indication
     Dosage: UNK
     Route: 065
     Dates: start: 20220823, end: 20221008
  9. DEXAMETHASONE [Concomitant]
     Active Substance: DEXAMETHASONE
     Indication: Product used for unknown indication
     Dosage: UNK
     Route: 065
     Dates: start: 20220915, end: 20220916
  10. PANTOPRAZOLE SODIUM [Concomitant]
     Active Substance: PANTOPRAZOLE SODIUM
     Indication: Product used for unknown indication
     Dosage: UNK
     Route: 065
     Dates: start: 20220915, end: 20220916
  11. HEPARIN SODIUM [Concomitant]
     Active Substance: HEPARIN SODIUM
     Indication: Product used for unknown indication
     Dosage: UNK
     Route: 065
     Dates: start: 20220915, end: 20220916
  12. PALONOSETRON [Concomitant]
     Active Substance: PALONOSETRON
     Indication: Product used for unknown indication
     Dosage: UNK
     Route: 065
     Dates: start: 20220916, end: 20220916
  13. RECOMBINANT HUMAN GRANULOCYTE COLONY STIMULAT [Concomitant]
     Indication: Product used for unknown indication
     Dosage: UNK
     Route: 065
     Dates: start: 20220927, end: 20220928
  14. CEFTRIAXONE SODIUM [Concomitant]
     Active Substance: CEFTRIAXONE SODIUM
     Indication: Product used for unknown indication
     Dosage: UNK
     Route: 065
     Dates: start: 20220927, end: 20221001
  15. IBUPROFEN [Concomitant]
     Active Substance: IBUPROFEN
     Indication: Product used for unknown indication
     Dosage: UNK (SUSPENSION)
     Route: 065
     Dates: start: 20220925, end: 20221003
  16. FOLIC ACID [Concomitant]
     Active Substance: FOLIC ACID
     Indication: Product used for unknown indication
     Dosage: UNK
     Route: 065
     Dates: start: 20220617, end: 20221008
  17. LEUCOGEN [Concomitant]
     Active Substance: LEUCOGEN
     Indication: Product used for unknown indication
     Dosage: UNK
     Route: 065
     Dates: start: 20220630, end: 20221008
  18. METHYLPREDNISOLONE SODIUM SUCCINATE [Concomitant]
     Active Substance: METHYLPREDNISOLONE SODIUM SUCCINATE
     Indication: Product used for unknown indication
     Dosage: UNK
     Route: 065
     Dates: start: 20220903, end: 20221010
  19. PENICILLIN G [Concomitant]
     Active Substance: PENICILLIN G
     Indication: Product used for unknown indication
     Dosage: UNK
     Route: 065
     Dates: start: 20221005, end: 20221005

REACTIONS (1)
  - Acute hepatic failure [Fatal]

NARRATIVE: CASE EVENT DATE: 20221005
